FAERS Safety Report 24134241 (Version 1)
Quarter: 2024Q3

REPORT INFORMATION
  Report Type: Spontaneous
  Country: US (occurrence: US)
  Receive Date: 20240724
  Receipt Date: 20240724
  Transmission Date: 20241016
  Serious: Yes (Death, Other)
  Sender: AMGEN
  Company Number: US-AMGEN-USASP2024141780

PATIENT
  Age: 24 Year
  Sex: Male

DRUGS (3)
  1. FILGRASTIM [Suspect]
     Active Substance: FILGRASTIM
     Indication: Prophylaxis
     Dosage: 5 MICROGRAM/KILOGRAM, QD (D 6-18)
     Route: 058
  2. TOPOTECAN [Concomitant]
     Active Substance: TOPOTECAN HYDROCHLORIDE
     Dosage: 0.75 MILLIGRAM/SQ. METER (CIVI D 1-3)
     Route: 065
  3. DOXORUBICIN [Concomitant]
     Active Substance: DOXORUBICIN
     Dosage: 45 MILLIGRAM/SQ. METER (D 5)
     Route: 065

REACTIONS (3)
  - Death [Fatal]
  - Non-renal cell carcinoma of kidney [Unknown]
  - Enterococcal bacteraemia [Unknown]
